FAERS Safety Report 4462071-6 (Version None)
Quarter: 2004Q3

REPORT INFORMATION
  Report Type: 
  Country: None (occurrence: None)
  Receive Date: 20040924
  Receipt Date: 20040914
  Transmission Date: 20050211
  Serious: Yes (Other)
  Sender: FDA-Public Use
  Company Number: S04-USA-06175-01

PATIENT
  Age: 44 Year
  Sex: Female

DRUGS (3)
  1. LEXAPRO [Suspect]
     Indication: DEPRESSION
     Dosage: 10 MG QD PO
     Route: 048
     Dates: start: 20040206, end: 20040218
  2. LEXAPRO [Suspect]
     Indication: DEPRESSION
     Dosage: 15 MG  QD PO
     Route: 048
     Dates: start: 20040218, end: 20040220
  3. LEXAPRO [Suspect]
     Indication: DEPRESSION
     Dosage: 25 MG QD PO
     Route: 048
     Dates: start: 20040220

REACTIONS (1)
  - INTRACRANIAL PRESSURE INCREASED [None]
